FAERS Safety Report 14573753 (Version 1)
Quarter: 2018Q1

REPORT INFORMATION
  Report Type: Report from Study
  Country: GB (occurrence: GB)
  Receive Date: 20180226
  Receipt Date: 20180226
  Transmission Date: 20180509
  Serious: Yes (Other)
  Sender: FDA-Public Use
  Company Number: PHHY2018GB030010

PATIENT
  Sex: Female

DRUGS (1)
  1. COSENTYX [Suspect]
     Active Substance: SECUKINUMAB
     Indication: PSORIATIC ARTHROPATHY
     Dosage: 300 MG, (TWO PENS) QMO
     Route: 058
     Dates: start: 20171004

REACTIONS (5)
  - Inappropriate schedule of drug administration [Unknown]
  - Stomatitis [Unknown]
  - Drug ineffective [Unknown]
  - Lower respiratory tract infection [Unknown]
  - Swelling [Unknown]
